FAERS Safety Report 20748619 (Version 4)
Quarter: 2022Q2

REPORT INFORMATION
  Report Type: Spontaneous
  Country: IT (occurrence: IT)
  Receive Date: 20220426
  Receipt Date: 20220622
  Transmission Date: 20220720
  Serious: Yes (Death, Other)
  Sender: FDA-Public Use
  Company Number: IT-CELLTRION INC.-2022IT004953

PATIENT

DRUGS (10)
  1. RITUXIMAB [Suspect]
     Active Substance: RITUXIMAB
     Indication: Epstein-Barr virus associated lymphoproliferative disorder
     Dosage: 200 MG/M2 ON DAY -1, PHARMACEUTICAL DOSE FORM:  INFUSION, SOLUTION
     Route: 042
  2. RITUXIMAB [Suspect]
     Active Substance: RITUXIMAB
     Indication: Prophylaxis against graft versus host disease
     Dosage: 200 MG/M2 ON DAY 1
  3. RITUXIMAB [Suspect]
     Active Substance: RITUXIMAB
     Indication: Prophylaxis against transplant rejection
  4. FLUDARABINE [Suspect]
     Active Substance: FLUDARABINE PHOSPHATE
     Indication: Prophylaxis against graft versus host disease
     Dosage: 120 OR 160 MG/M2 TOTAL DOSE ON DAYS -6 TO -3
     Route: 065
  5. CYCLOPHOSPHAMIDE [Suspect]
     Active Substance: CYCLOPHOSPHAMIDE
     Indication: Prophylaxis against graft versus host disease
     Dosage: 300 MG/M2 TOTAL DOSE ON DAYS -6 TO -3
     Route: 065
  6. ATG-FRESENIUS [Suspect]
     Active Substance: LAPINE T-LYMPHOCYTE IMMUNE GLOBULIN
     Indication: Prophylaxis against graft versus host disease
     Dosage: DAYS -4 TO -2
     Route: 065
  7. ATG-FRESENIUS [Suspect]
     Active Substance: LAPINE T-LYMPHOCYTE IMMUNE GLOBULIN
     Indication: Allogenic stem cell transplantation
     Dosage: 12 MG/KG, DAYS -4 TO -2
  8. ATG-FRESENIUS [Suspect]
     Active Substance: LAPINE T-LYMPHOCYTE IMMUNE GLOBULIN
     Indication: Prophylaxis against transplant rejection
  9. ANTI-THYMOCYTE GLOBULIN (RABBIT) NOS [Concomitant]
     Active Substance: LAPINE T-LYMPHOCYTE IMMUNE GLOBULIN
     Indication: Prophylaxis against transplant rejection
     Dosage: 12 MG/KG TOTAL DOSE ON DAYS -4 TO -2
  10. AMPHOTERICIN B [Concomitant]
     Active Substance: AMPHOTERICIN B
     Indication: Antifungal prophylaxis
     Dosage: 5 MG PER KG, ONCE WEEKLY UNTIL THE FIRST 100 DAYS AFTER HSCT

REACTIONS (9)
  - Multiple organ dysfunction syndrome [Fatal]
  - Neisseria infection [Fatal]
  - Cytomegalovirus infection [Fatal]
  - Human herpesvirus 6 infection [Fatal]
  - Parvovirus B19 infection [Fatal]
  - Transplant failure [Unknown]
  - Transplant rejection [Unknown]
  - Bacteraemia [Unknown]
  - Off label use [Unknown]
